FAERS Safety Report 21723252 (Version 2)
Quarter: 2024Q1

REPORT INFORMATION
  Report Type: Report from Study
  Country: US (occurrence: US)
  Receive Date: 20221213
  Receipt Date: 20240203
  Transmission Date: 20240410
  Serious: Yes (Other)
  Sender: FDA-Public Use
  Company Number: US-ABBVIE-4232655

PATIENT
  Sex: Male

DRUGS (1)
  1. IMBRUVICA [Suspect]
     Active Substance: IBRUTINIB
     Indication: Waldenstrom^s macroglobulinaemia
     Route: 048
     Dates: start: 20190524

REACTIONS (10)
  - Squamous cell carcinoma of skin [Unknown]
  - Back injury [Unknown]
  - Squamous cell carcinoma [Unknown]
  - Fatigue [Unknown]
  - Feeling abnormal [Unknown]
  - Dysstasia [Unknown]
  - Immunoglobulins abnormal [Unknown]
  - Stress at work [Unknown]
  - Emotional distress [Unknown]
  - Asthenia [Unknown]
